FAERS Safety Report 6930194-5 (Version None)
Quarter: 2010Q3

REPORT INFORMATION
  Report Type: 
  Country: None (occurrence: None)
  Receive Date: 20100818
  Receipt Date: 20100806
  Transmission Date: 20110219
  Serious: Yes (Other)
  Sender: FDA-Public Use
  Company Number: PHHY2010US51816

PATIENT
  Sex: Male

DRUGS (1)
  1. TEKTURNA HCT [Suspect]

REACTIONS (1)
  - RENAL DISORDER [None]
